FAERS Safety Report 19746412 (Version 2)
Quarter: 2021Q3

REPORT INFORMATION
  Report Type: Report from Study
  Country: US (occurrence: US)
  Receive Date: 20210826
  Receipt Date: 20210902
  Transmission Date: 20211014
  Serious: Yes (Death, Life-Threatening, Hospitalization)
  Sender: FDA-Public Use
  Company Number: US-BRISTOL-MYERS SQUIBB COMPANY-BMS-2021-083935

PATIENT
  Age: 65 Year
  Sex: Female

DRUGS (22)
  1. CLARITIN [Concomitant]
     Active Substance: LORATADINE
     Indication: HYPERSENSITIVITY
     Dosage: TAKE 10 MG BY MOUTH DAILY AS NEEDED FOR
     Route: 048
  2. MG?PLUS?PROTEIN [Concomitant]
     Indication: PRODUCT USED FOR UNKNOWN INDICATION
     Dosage: TAKE 1 TABLET BY MOUTH TWICE DAILY. TAKE WITH FOOD. CAN USE IMODIUMN IF CAUSES DIARRHEA
     Route: 048
     Dates: start: 20210713
  3. ZYPREXA [Concomitant]
     Active Substance: OLANZAPINE
     Indication: ANXIETY
     Dosage: TAKE HALF TABLETS (2.5 MG) BY MOUTH EVERY 6 (SIX) HOURS AS NEEDED FOR
     Route: 048
     Dates: start: 20210716
  4. VALTREX [Concomitant]
     Active Substance: VALACYCLOVIR HYDROCHLORIDE
     Indication: PROPHYLAXIS
     Dosage: TAKE 1 TABLET (500 MG) BY MOUTH DAILY.
     Route: 048
     Dates: start: 20201217
  5. PREVYMIS [Concomitant]
     Active Substance: LETERMOVIR
     Indication: PROPHYLAXIS
     Dosage: TAKE 1 TABLET (480 MG) BY MOUTH DAILY
     Route: 048
     Dates: start: 20210611
  6. JANUVIA [Concomitant]
     Active Substance: SITAGLIPTIN PHOSPHATE
     Indication: BLOOD GLUCOSE FLUCTUATION
     Dosage: TAKE 1 TABLET (50 MG) BY MOUTH DAILY
     Route: 048
     Dates: start: 20210612
  7. IPILIMUMAB [Suspect]
     Active Substance: IPILIMUMAB
     Indication: ACUTE MYELOID LEUKAEMIA RECURRENT
     Dosage: 62.5 MILLIGRAM, Q6WK
     Route: 042
     Dates: start: 20210608, end: 20210823
  8. MEPRON [Concomitant]
     Active Substance: ATOVAQUONE
     Indication: PROPHYLAXIS
     Dosage: TAKE 10 ML (1,500 MG) BY MOUTH DAILY WITH BREAKFAST
     Route: 048
     Dates: start: 20210713
  9. KYTRIL [Concomitant]
     Active Substance: GRANISETRON HYDROCHLORIDE
     Indication: NAUSEA
     Dosage: TAKE 1 TABLET (1 MG) BY MOUTH EVERY 12 (TWELVE) HOURS AS NEEDED FOR
     Route: 048
     Dates: start: 20210716
  10. SODIUM CHLORIDE. [Concomitant]
     Active Substance: SODIUM CHLORIDE
     Indication: PRODUCT USED FOR UNKNOWN INDICATION
     Dosage: INJECT 10 ML (1 SYRINGE) INTO EACH LUMEN OF CENTRAL VENOUS CATHETER DAILY AS DIRECTED
     Route: 065
     Dates: start: 20201211
  11. SODIUM CHLORIDE. [Concomitant]
     Active Substance: SODIUM CHLORIDE
     Indication: PRODUCT USED FOR UNKNOWN INDICATION
     Dosage: TAKE 2 TABLETS (2 G) BY MOUTH 3 (THREE) TIMES A DAY
     Route: 048
     Dates: start: 20210728
  12. NIVOLUMAB [Suspect]
     Active Substance: NIVOLUMAB
     Indication: ACUTE MYELOID LEUKAEMIA RECURRENT
     Dosage: 62 MILLIGRAM, Q2WK
     Route: 042
     Dates: start: 20210608, end: 20210823
  13. VITAMIN D3 [Concomitant]
     Active Substance: CHOLECALCIFEROL
     Indication: PRODUCT USED FOR UNKNOWN INDICATION
     Dosage: TAKE 1000 UNITS BY MOUTH DAILY
     Route: 048
  14. FLONASE ALLERGY RELIEF [Concomitant]
     Active Substance: FLUTICASONE PROPIONATE
     Indication: PRODUCT USED FOR UNKNOWN INDICATION
     Dosage: INHALE 1 SPRAY INTO EACH NOSTRIL AS NEEDED
  15. MELATONIN [Concomitant]
     Active Substance: MELATONIN
     Indication: INSOMNIA
     Dosage: TAKE 1 TABLET (5 MG) BY MOUTH NIGHTLY AS NEEDED
     Route: 048
     Dates: start: 20210710
  16. PROGRAF [Concomitant]
     Active Substance: TACROLIMUS
     Indication: PROPHYLAXIS
     Dosage: TAKE 2 CAPSULES (1 MG) BY MOUTH EVERYEVENING AND 2 CAPSULES (1 MG) EVERY MORNING DO NOT TAKE AM DOSE
     Route: 048
     Dates: start: 20210618
  17. CORTEF [Concomitant]
     Active Substance: HYDROCORTISONE
     Indication: PRODUCT USED FOR UNKNOWN INDICATION
     Dosage: TAKE 2 TABLETS BY MOUTH IN THE MORNING AND 1 TABLET BY MOUTH IN THE AFTERNOON
     Route: 048
     Dates: start: 20210317
  18. PROTONIX [Concomitant]
     Active Substance: PANTOPRAZOLE SODIUM
     Indication: PROPHYLAXIS
     Dosage: TAKE 1 TABLET (40 MG) BY MOUTH DAILY WITH BREAKFAST
     Route: 048
     Dates: start: 20210705
  19. BENTYL [Concomitant]
     Active Substance: DICYCLOMINE HYDROCHLORIDE
     Indication: ABDOMINAL PAIN
     Dosage: TAKE 1 CAPSULE (10 MG) BY MOUTH EVERY 6 (SIX) HOURS AS NEEDED
     Route: 048
     Dates: start: 20210610
  20. PROAMATINE [Concomitant]
     Active Substance: MIDODRINE HYDROCHLORIDE
     Indication: PRODUCT USED FOR UNKNOWN INDICATION
     Dosage: TAKE 1 TABLET (5 MG) BY MOUTH 3 (THREE) TIMES A DAY.
     Route: 048
     Dates: start: 20210301
  21. NOXAFIL [Concomitant]
     Active Substance: POSACONAZOLE
     Indication: PROPHYLAXIS
     Dosage: TAKE 3 TABLETS (300 MG) BY MOUTH DAILY
     Route: 048
     Dates: start: 20210611
  22. NEURONTIN [Concomitant]
     Active Substance: GABAPENTIN
     Indication: RESTLESS LEGS SYNDROME
     Dosage: TAKE 1 CAPSULE (300 MG) BY MOUTH NIGHTLY AS NEEDED
     Route: 048
     Dates: start: 20210331

REACTIONS (1)
  - Colitis [Fatal]

NARRATIVE: CASE EVENT DATE: 20210811
